FAERS Safety Report 8478615 (Version 3)
Quarter: 2014Q4

REPORT INFORMATION
  Report Type: Spontaneous
  Country: US (occurrence: US)
  Receive Date: 20120327
  Receipt Date: 20141217
  Transmission Date: 20150529
  Serious: Yes (Hospitalization, Other)
  Sender: FDA-Public Use
  Company Number: US-ROCHE-783676

PATIENT
  Age: 17 Year
  Sex: Male
  Weight: 65.83 kg

DRUGS (1)
  1. ACCUTANE [Suspect]
     Active Substance: ISOTRETINOIN
     Indication: ACNE
     Route: 065

REACTIONS (8)
  - Anal fistula [Unknown]
  - Anal abscess [Unknown]
  - Stress [Unknown]
  - Irritable bowel syndrome [Unknown]
  - Colitis ulcerative [Unknown]
  - Osteopenia [Unknown]
  - Inflammatory bowel disease [Unknown]
  - Large intestine polyp [Unknown]

NARRATIVE: CASE EVENT DATE: 198708
